FAERS Safety Report 6708981-8 (Version None)
Quarter: 2010Q2

REPORT INFORMATION
  Report Type: 
  Country: None (occurrence: None)
  Receive Date: 20100504
  Receipt Date: 20100421
  Transmission Date: 20101027
  Serious: Yes (Other)
  Sender: FDA-Public Use
  Company Number: PHHY2010US23119

PATIENT
  Sex: Female

DRUGS (24)
  1. DIOVAN [Suspect]
     Indication: HYPERTENSION
     Dosage: 160 MG
     Dates: start: 20020101
  2. ZANAFLEX [Suspect]
     Indication: MUSCLE SPASMS
     Dosage: 2 MG, BID
     Route: 048
     Dates: start: 20090101
  3. JANUMET [Suspect]
     Indication: DIABETES MELLITUS
     Dosage: 500 MG DAILY
  4. ZYRTEC [Suspect]
     Indication: HYPERSENSITIVITY
     Dosage: 10 MG, QD
     Route: 048
     Dates: start: 20090101
  5. GABAPENTIN [Suspect]
     Indication: DIABETIC NEUROPATHY
     Dosage: 2 DF, TID
     Dates: start: 20040101
  6. GABAPENTIN [Suspect]
     Indication: FIBROMYALGIA
  7. VICODIN [Suspect]
     Indication: ARTHRALGIA
     Dosage: 7.5/325 MG, EVERY FOUR HOURS
     Dates: start: 20060101
  8. BUPROPION HCL [Suspect]
     Indication: DEPRESSION
     Dosage: 300 MG DAILY
  9. LOZOL [Suspect]
     Dosage: UNK
     Dates: start: 20020101
  10. JANUMET [Suspect]
     Dosage: 50/500 MG DAILY
  11. KLONOPIN [Suspect]
     Indication: ANXIETY
     Dosage: 0.5 MG, BID
  12. KLONOPIN [Suspect]
     Indication: PANIC ATTACK
  13. PRILOSEC [Suspect]
     Indication: GASTROOESOPHAGEAL REFLUX DISEASE
     Dosage: 20 MG, BID
  14. CARAFATE [Suspect]
     Indication: GASTROOESOPHAGEAL REFLUX DISEASE
     Dosage: 1 G, BID
  15. AGGRENOX [Suspect]
     Indication: ANGIOPATHY
     Dosage: TWICE DAILY
  16. FLONASE [Suspect]
     Indication: HYPERSENSITIVITY
     Dosage: TWO SPRAYS PER NOSTRIL DAILY
  17. FLOVENT [Suspect]
     Indication: ASTHMA
     Dosage: TWO PUFFS OF 110 MCG TWICE DAILY
  18. VENTOLIN [Suspect]
     Indication: ASTHMA
     Dosage: TWO PUFFS OF 90 MCG EVERY TWO HOURS
  19. IMITREX [Suspect]
     Indication: MIGRAINE
     Dosage: 100 MG AS NEEDED
  20. NITROLINGUAL [Suspect]
     Indication: CHEST PAIN
     Dosage: 0.4 MG AS NEEDED
  21. EPIPEN [Suspect]
     Indication: HYPERSENSITIVITY
     Dosage: UNK
  22. LORTAB [Suspect]
     Dosage: UNK
  23. SIMVASTATIN [Suspect]
     Dosage: UNK
  24. MULTI-VITAMINS [Concomitant]
     Dosage: UNK

REACTIONS (3)
  - CARDIAC DISORDER [None]
  - CONDITION AGGRAVATED [None]
  - MEMORY IMPAIRMENT [None]
